FAERS Safety Report 5336566-7 (Version None)
Quarter: 2007Q2

REPORT INFORMATION
  Report Type: 
  Country: None (occurrence: None)
  Receive Date: 20070529
  Receipt Date: 20070516
  Transmission Date: 20071010
  Serious: Yes (Hospitalization)
  Sender: FDA-Public Use
  Company Number: US-AMGEN-US221718

PATIENT
  Sex: Female

DRUGS (6)
  1. ENBREL [Suspect]
     Indication: RHEUMATOID ARTHRITIS
     Route: 058
     Dates: start: 20060401
  2. METHOTREXATE [Concomitant]
     Route: 065
     Dates: start: 20000101
  3. OXYCODONE HCL [Concomitant]
     Route: 065
  4. OXYCONTIN [Concomitant]
     Route: 065
  5. TEMAZEPAM [Concomitant]
     Route: 065
  6. PREDNISONE TAB [Concomitant]

REACTIONS (10)
  - ANOREXIA [None]
  - CONTUSION [None]
  - FALL [None]
  - HEADACHE [None]
  - NECK PAIN [None]
  - PNEUMONIA [None]
  - SCAB [None]
  - SYNOVITIS [None]
  - URINARY TRACT INFECTION [None]
  - VASCULAR DEMENTIA [None]
